FAERS Safety Report 24438687 (Version 1)
Quarter: 2024Q4

REPORT INFORMATION
  Report Type: Spontaneous
  Country: US (occurrence: None)
  Receive Date: 20241013
  Receipt Date: 20241013
  Transmission Date: 20250114
  Serious: No
  Sender: Public
  Company Number: None

PATIENT
  Age: 67 Year
  Sex: Male
  Weight: 99 kg

DRUGS (5)
  1. SUPREP BOWEL PREP [Suspect]
     Active Substance: MAGNESIUM SULFATE\POTASSIUM SULFATE\SODIUM SULFATE
     Indication: Colonoscopy
     Dosage: OTHER FREQUENCY : PRIOR TO COLONOSCO;?
     Route: 048
     Dates: start: 20240418, end: 20240419
  2. MELOXICAM [Concomitant]
     Active Substance: MELOXICAM
  3. METHOTREXATE [Concomitant]
     Active Substance: METHOTREXATE
  4. LEVOTHYROXINE [Concomitant]
     Active Substance: LEVOTHYROXINE
  5. PROBIOTICS NOS [Concomitant]
     Active Substance: PROBIOTICS NOS

REACTIONS (2)
  - Diarrhoea [None]
  - Food allergy [None]

NARRATIVE: CASE EVENT DATE: 20240419
